FAERS Safety Report 8922533 (Version 1)
Quarter: 2012Q4

REPORT INFORMATION
  Report Type: Spontaneous
  Country: IT (occurrence: None)
  Receive Date: 20121109
  Receipt Date: 20121109
  Transmission Date: 20130627
  Serious: Yes (Hospitalization)
  Sender: FDA-Public Use
  Company Number: 2012S1000754

PATIENT
  Age: 82 Year
  Sex: Male

DRUGS (7)
  1. CUBICIN [Suspect]
     Indication: STAPHYLOCOCCAL INFECTION
     Route: 042
     Dates: start: 20120719, end: 20120721
  2. CALCITRIOL [Concomitant]
  3. LUVION [Concomitant]
  4. ESOPRAL [Concomitant]
  5. LASIX [Concomitant]
  6. CLEXANE [Concomitant]
  7. ADENURIC [Concomitant]

REACTIONS (2)
  - Infusion site rash [None]
  - Rash [None]
